FAERS Safety Report 25088913 (Version 1)
Quarter: 2025Q1

REPORT INFORMATION
  Report Type: Spontaneous
  Country: US (occurrence: None)
  Receive Date: 20250315
  Receipt Date: 20250315
  Transmission Date: 20250409
  Serious: Yes (Other)
  Sender: FDA-CTU
  Company Number: None

PATIENT
  Age: 55 Year
  Sex: Female
  Weight: 65.77 kg

DRUGS (2)
  1. LILETTA [Suspect]
     Active Substance: LEVONORGESTREL
  2. ESTRADIOL [Concomitant]
     Active Substance: ESTRADIOL

REACTIONS (4)
  - Complication of device insertion [None]
  - Pain [None]
  - Muscle spasms [None]
  - Heavy menstrual bleeding [None]

NARRATIVE: CASE EVENT DATE: 20241101
